FAERS Safety Report 25987101 (Version 2)
Quarter: 2025Q4

REPORT INFORMATION
  Report Type: Spontaneous
  Country: US (occurrence: US)
  Receive Date: 20251103
  Receipt Date: 20251110
  Transmission Date: 20260119
  Serious: No
  Sender: TEVA
  Company Number: US-TEVA-VS-3387496

PATIENT
  Age: 54 Year
  Sex: Female

DRUGS (1)
  1. AJOVY [Suspect]
     Active Substance: FREMANEZUMAB-VFRM
     Indication: Product used for unknown indication
     Dosage: 225 MG / 1.5 ML
     Route: 065

REACTIONS (9)
  - Device malfunction [Unknown]
  - Nausea [Unknown]
  - Injection site erythema [Unknown]
  - Needle issue [Unknown]
  - Accidental exposure to product [Unknown]
  - Injection site pruritus [Unknown]
  - Wrong technique in product usage process [Unknown]
  - Device leakage [Unknown]
  - Wrong technique in device usage process [Unknown]
